FAERS Safety Report 6240317-1 (Version None)
Quarter: 2009Q2

REPORT INFORMATION
  Report Type: 
  Country: None (occurrence: None)
  Receive Date: 20090623
  Receipt Date: 20080707
  Transmission Date: 20091009
  Serious: No
  Sender: FDA-Public Use
  Company Number: US-ASTRAZENECA-2008UW13592

PATIENT
  Age: 70 Year
  Sex: Female
  Weight: 90.3 kg

DRUGS (7)
  1. PULMICORT RESPULES [Suspect]
     Indication: CHRONIC OBSTRUCTIVE PULMONARY DISEASE
     Dosage: 0.5 MG 30 COUNT
     Route: 055
     Dates: start: 20080401
  2. GLYBURIDE [Concomitant]
  3. METFORMIN HCL [Concomitant]
  4. SIMVASTATIN [Concomitant]
  5. HYDROCHLOROTHIAZIDE [Concomitant]
  6. SYNTHROID [Concomitant]
  7. FOSINOPRIL SODIUM [Concomitant]

REACTIONS (1)
  - BLOOD GLUCOSE INCREASED [None]
